FAERS Safety Report 19870063 (Version 5)
Quarter: 2022Q3

REPORT INFORMATION
  Report Type: Spontaneous
  Country: US (occurrence: US)
  Receive Date: 20210922
  Receipt Date: 20220927
  Transmission Date: 20221026
  Serious: Yes (Hospitalization, Other)
  Sender: FDA-Public Use
  Company Number: US-INCYTE CORPORATION-2021IN008415

PATIENT

DRUGS (7)
  1. JAKAFI [Suspect]
     Active Substance: RUXOLITINIB
     Indication: Polycythaemia vera
     Dosage: 15 MILLIGRAM, BID
     Route: 048
     Dates: start: 20210609
  2. JAKAFI [Suspect]
     Active Substance: RUXOLITINIB
     Dosage: 15 MILLIGRAM, BID
     Route: 048
     Dates: start: 20210609
  3. JAKAFI [Suspect]
     Active Substance: RUXOLITINIB
     Dosage: 15 MILLIGRAM, BID
     Route: 048
     Dates: start: 20210609
  4. JAKAFI [Suspect]
     Active Substance: RUXOLITINIB
     Dosage: 10 MILLIGRAM, BID
     Route: 048
     Dates: start: 20210609
  5. JAKAFI [Suspect]
     Active Substance: RUXOLITINIB
     Dosage: 10 MILLIGRAM, BID
     Route: 048
     Dates: start: 20210609
  6. PROLIA [Suspect]
     Active Substance: DENOSUMAB
     Indication: Product used for unknown indication
     Dosage: ONCE EVERY SIX MONTHS
     Route: 065
  7. FOSAMAX [Suspect]
     Active Substance: ALENDRONATE SODIUM
     Indication: Product used for unknown indication
     Dosage: UNK
     Route: 065

REACTIONS (19)
  - Dehydration [Recovering/Resolving]
  - Loss of consciousness [Unknown]
  - Mitral valve incompetence [Unknown]
  - Fluid intake reduced [Recovering/Resolving]
  - Feeling abnormal [Unknown]
  - Asthenia [Recovering/Resolving]
  - Fatigue [Recovering/Resolving]
  - Gastric disorder [Recovering/Resolving]
  - Tooth disorder [Unknown]
  - Renal disorder [Unknown]
  - Cardiac hypertrophy [Unknown]
  - Extrasystoles [Unknown]
  - Hypoaesthesia [Unknown]
  - Myalgia [Unknown]
  - Bone pain [Unknown]
  - Pain [Unknown]
  - Dyspnoea exertional [Unknown]
  - Anaemia [Unknown]
  - Dizziness [Unknown]
